FAERS Safety Report 8780765 (Version 1)
Quarter: 2012Q4

REPORT INFORMATION
  Report Type: 
  Country: BR (occurrence: BR)
  Receive Date: 20120913
  Receipt Date: 20120913
  Transmission Date: 20130627
  Serious: Yes (Death, Other)
  Sender: FDA-Public Use
  Company Number: BR-SANOFI-AVENTIS-2012SA063738

PATIENT
  Age: 38 Year
  Sex: Male
  Weight: 63 kg

DRUGS (1)
  1. DOLANTINA [Suspect]
     Indication: DRUG USE FOR UNKNOWN INDICATION
     Route: 042
     Dates: end: 2012

REACTIONS (3)
  - Acute pulmonary oedema [Fatal]
  - Acute myocardial infarction [Fatal]
  - Drug dependence [Unknown]
